FAERS Safety Report 24624325 (Version 2)
Quarter: 2024Q4

REPORT INFORMATION
  Report Type: Spontaneous
  Country: US (occurrence: US)
  Receive Date: 20241115
  Receipt Date: 20241211
  Transmission Date: 20250114
  Serious: Yes (Other)
  Sender: BAYER HEALTHCARE PHARMACEUTICALS INC.
  Company Number: US-BAYER-2024A161503

PATIENT
  Age: 16 Year
  Sex: Male

DRUGS (4)
  1. JIVI [Suspect]
     Active Substance: DAMOCTOCOG ALFA PEGOL
     Indication: Factor VIII deficiency
     Dosage: 3500 IU (3150-3850), BIW, AS NEEDED FOR BLEEDING
     Route: 042
     Dates: start: 202211
  2. JIVI [Suspect]
     Active Substance: DAMOCTOCOG ALFA PEGOL
     Indication: Factor VIII deficiency
     Dosage: 1 UNKNOWN DOSE USED
     Route: 042
     Dates: start: 20241010, end: 20241010
  3. JIVI [Suspect]
     Active Substance: DAMOCTOCOG ALFA PEGOL
     Indication: Factor VIII deficiency
     Dosage: JIVI 3000 UNITS/INFUSE 3500 UNITS SLOW IV PUSH BIW PRN FOR BLEEDING
     Route: 042
     Dates: start: 201304
  4. JIVI [Suspect]
     Active Substance: DAMOCTOCOG ALFA PEGOL
     Indication: Factor VIII deficiency
     Dosage: JIVI 1 DF
     Route: 042

REACTIONS (4)
  - Haemarthrosis [None]
  - Joint injury [None]
  - Haemarthrosis [Recovered/Resolved]
  - Joint injury [Recovered/Resolved]

NARRATIVE: CASE EVENT DATE: 20241010
